FAERS Safety Report 8137138-1 (Version None)
Quarter: 2012Q1

REPORT INFORMATION
  Report Type: 
  Country: None (occurrence: None)
  Receive Date: 20120215
  Receipt Date: 20120204
  Transmission Date: 20120608
  Serious: Yes (Other)
  Sender: FDA-Public Use
  Company Number: US-PAR PHARMACEUTICAL, INC-2012SCPR004202

PATIENT

DRUGS (6)
  1. HALOPERIDOL [Suspect]
     Indication: PRODUCT USED FOR UNKNOWN INDICATION
     Dosage: 5 MG, HS
     Route: 065
  2. QUETIAPINE [Suspect]
     Indication: PRODUCT USED FOR UNKNOWN INDICATION
     Dosage: 150MG BID AND 300 MG HS
     Route: 065
  3. CLONAZEPAM [Suspect]
     Indication: PRODUCT USED FOR UNKNOWN INDICATION
     Dosage: 1MG MORNING AND 2MG HS
     Route: 065
  4. TRAZODONE HCL [Suspect]
     Indication: PRODUCT USED FOR UNKNOWN INDICATION
     Dosage: 100 MG, HS
     Route: 065
  5. BUPRENORPHINE HCL AND NALOXONE HCL [Suspect]
     Indication: DRUG DEPENDENCE
     Dosage: 4 MG, QD
     Route: 060
  6. BUPRENORPHINE HCL AND NALOXONE HCL [Suspect]
     Dosage: 8 MG, QD
     Route: 060

REACTIONS (2)
  - DEPRESSED LEVEL OF CONSCIOUSNESS [None]
  - DRUG INTERACTION [None]
